FAERS Safety Report 8575250 (Version 2)
Quarter: 2014Q1

REPORT INFORMATION
  Report Type: Spontaneous
  Country: US (occurrence: None)
  Receive Date: 20120323
  Receipt Date: 20130305
  Transmission Date: 20141002
  Serious: Yes (Hospitalization)
  Sender: FDA-Public Use
  Company Number: 163-21880-11120958

PATIENT
  Age: 59 Year
  Sex: Female
  Weight: 71.67 kg

DRUGS (3)
  1. REVLIMID [Suspect]
     Indication: PLASMA CELL MYELOMA
     Dosage: 25 MG, FOR 21 DAYS, PO
     Route: 048
     Dates: start: 201104
  2. DECADRON [Suspect]
     Indication: PRODUCT USED FOR UNKNOWN INDICATION
     Dosage: 40 MG, WEEKLY, UNK
     Dates: start: 201104
  3. ACTOPLUS (MOPADAY) - (UNKNOWN) [Concomitant]

REACTIONS (3)
  - Dyspnoea [None]
  - Chest discomfort [None]
  - Hyperhidrosis [None]
